FAERS Safety Report 15451662 (Version 1)
Quarter: 2018Q4

REPORT INFORMATION
  Report Type: Spontaneous
  Country: GB (occurrence: GB)
  Receive Date: 20181001
  Receipt Date: 20181001
  Transmission Date: 20190204
  Serious: Yes (Hospitalization, Other)
  Sender: FDA-Public Use
  Company Number: GB-PFIZER INC-2018392449

PATIENT
  Age: 72 Year
  Sex: Male
  Weight: 80 kg

DRUGS (7)
  1. AMIODARONE HCL [Suspect]
     Active Substance: AMIODARONE HYDROCHLORIDE
     Indication: CARDIOVERSION
     Dosage: 600 MG, 1X/DAY
     Route: 048
     Dates: start: 20180801, end: 20180831
  2. TAMSULOSIN [Concomitant]
     Active Substance: TAMSULOSIN
     Dosage: UNK
  3. SIMVASTATIN. [Concomitant]
     Active Substance: SIMVASTATIN
     Dosage: UNK
  4. FUROSEMIDE. [Concomitant]
     Active Substance: FUROSEMIDE
     Dosage: UNK
  5. BISOPROLOL [Concomitant]
     Active Substance: BISOPROLOL
     Dosage: UNK
  6. WARFARIN [Concomitant]
     Active Substance: WARFARIN
     Dosage: UNK
  7. RAMIPRIL. [Concomitant]
     Active Substance: RAMIPRIL
     Dosage: UNK

REACTIONS (2)
  - Diarrhoea [Recovered/Resolved]
  - Acute kidney injury [Recovered/Resolved]

NARRATIVE: CASE EVENT DATE: 20180825
